FAERS Safety Report 8826312 (Version 3)
Quarter: 2013Q1

REPORT INFORMATION
  Report Type: Report from Study
  Country: JP (occurrence: JP)
  Receive Date: 20121005
  Receipt Date: 20130329
  Transmission Date: 20140127
  Serious: Yes (Hospitalization)
  Sender: FDA-Public Use
  Company Number: JP-VERTEX PHARMACEUTICAL INC.-2012-021790

PATIENT
  Age: 66 Year
  Sex: Male

DRUGS (8)
  1. VX-950 (TELAPREVIR) [Suspect]
     Indication: CHRONIC HEPATITIS C
     Dosage: 2250 MG, QD
     Route: 048
     Dates: start: 20120719, end: 20120830
  2. VX-950 (TELAPREVIR) [Suspect]
     Dosage: 1500 MG, QD
     Route: 048
     Dates: start: 20120831, end: 20120913
  3. RIBAVIRIN [Suspect]
     Indication: CHRONIC HEPATITIS C
     Dosage: 600 MG, QD
     Route: 048
     Dates: start: 20120719, end: 20120723
  4. RIBAVIRIN [Suspect]
     Dosage: 400 MG, QD
     Route: 048
     Dates: start: 20120724, end: 20120913
  5. PEGINTRON [Suspect]
     Indication: CHRONIC HEPATITIS C
     Dosage: 0.8 ?G/KG, QW
     Route: 058
     Dates: start: 20120719, end: 20120913
  6. FLUTIDE [Concomitant]
     Dosage: UNK
     Route: 055
     Dates: end: 20120913
  7. FEBURIC [Concomitant]
     Dosage: 10 MG, QD
     Route: 048
     Dates: start: 20120717, end: 20120913
  8. KIPRES [Concomitant]
     Dosage: 10 MG, QD
     Route: 048

REACTIONS (1)
  - Pneumonia bacterial [Unknown]
